FAERS Safety Report 24342828 (Version 1)
Quarter: 2024Q3

REPORT INFORMATION
  Report Type: Spontaneous
  Country: US (occurrence: US)
  Receive Date: 20240920
  Receipt Date: 20240920
  Transmission Date: 20241016
  Serious: No
  Sender: DR REDDYS
  Company Number: US-DRL-USA-SPO/USA/24/0013639

PATIENT
  Age: 73 Year
  Sex: Male

DRUGS (2)
  1. SIROLIMUS [Suspect]
     Active Substance: SIROLIMUS
     Indication: Bone loss
     Dates: start: 2021
  2. SIROLIMUS [Suspect]
     Active Substance: SIROLIMUS
     Indication: Periodontal disease

REACTIONS (1)
  - Off label use [Unknown]
